FAERS Safety Report 16031803 (Version 5)
Quarter: 2019Q3

REPORT INFORMATION
  Report Type: Report from Study
  Country: US (occurrence: US)
  Receive Date: 20190304
  Receipt Date: 20190924
  Transmission Date: 20191004
  Serious: Yes (Hospitalization)
  Sender: FDA-Public Use
  Company Number: US-ACTELION-A-US2017-159792

PATIENT
  Age: 78 Year
  Sex: Female

DRUGS (9)
  1. HYDROCHLOROTHIAZIDE. [Concomitant]
     Active Substance: HYDROCHLOROTHIAZIDE
  2. OPSUMIT [Suspect]
     Active Substance: MACITENTAN
     Indication: PULMONARY ARTERIAL HYPERTENSION
     Dosage: 10 MG, QD
     Route: 048
     Dates: start: 20170329
  3. FUROSEMIDE. [Concomitant]
     Active Substance: FUROSEMIDE
  4. METHOTREXATE. [Concomitant]
     Active Substance: METHOTREXATE
  5. PLAVIX [Concomitant]
     Active Substance: CLOPIDOGREL BISULFATE
  6. OPSUMIT [Suspect]
     Active Substance: MACITENTAN
     Dosage: 10 MG
     Route: 048
  7. SIMVASTATIN. [Concomitant]
     Active Substance: SIMVASTATIN
  8. NEXIUM [Concomitant]
     Active Substance: ESOMEPRAZOLE MAGNESIUM
  9. SPIRONOLACTONE. [Concomitant]
     Active Substance: SPIRONOLACTONE

REACTIONS (7)
  - Cystitis [Unknown]
  - Cerebrovascular accident [Unknown]
  - Sinus congestion [Recovered/Resolved]
  - Hospitalisation [Unknown]
  - Pneumonia [Recovering/Resolving]
  - Sinusitis [Unknown]
  - Abdominal discomfort [Unknown]

NARRATIVE: CASE EVENT DATE: 20190322
